FAERS Safety Report 19192843 (Version 2)
Quarter: 2021Q4

REPORT INFORMATION
  Report Type: Report from Study
  Country: FR (occurrence: None)
  Receive Date: 20210429
  Receipt Date: 20211112
  Transmission Date: 20220303
  Serious: Yes (Hospitalization)
  Sender: FDA-Public Use
  Company Number: FR-ROCHE-2811662

PATIENT
  Age: 51 Year
  Sex: Female

DRUGS (3)
  1. ATEZOLIZUMAB [Suspect]
     Active Substance: ATEZOLIZUMAB
     Indication: Metastatic malignant melanoma
     Dosage: ON 12/JAN//2021, SHE RECEIVED LAST DOSE OF ATEZOLIZUMAB PRIOR TO ONSET OF SERIOUS ADVERSE EVENT.
     Route: 042
     Dates: start: 20190219
  2. COBIMETINIB [Suspect]
     Active Substance: COBIMETINIB
     Indication: Metastatic malignant melanoma
     Dosage: ON 05/FEB/2019, SHE RECEIVED LAST DOSE OF COBIMETINIB PRIOR TO SAE ONSET
     Route: 048
     Dates: start: 20181122, end: 20190205
  3. VEMURAFENIB [Suspect]
     Active Substance: VEMURAFENIB
     Indication: Metastatic malignant melanoma
     Dosage: ON 05/FEB/2019, SHE RECEIVED LAST DOSE OF VEMURAFENIB PRIOR TO SAE ONSET
     Route: 048
     Dates: start: 20181122, end: 20190205

REACTIONS (1)
  - Colitis [Recovered/Resolved]

NARRATIVE: CASE EVENT DATE: 20210127
